FAERS Safety Report 17893621 (Version 1)
Quarter: 2020Q2

REPORT INFORMATION
  Report Type: Spontaneous
  Country: FR (occurrence: FR)
  Receive Date: 20200615
  Receipt Date: 20200615
  Transmission Date: 20200714
  Serious: Yes (Hospitalization)
  Sender: FDA-Public Use
  Company Number: FR-CADILA HEALTHCARE LIMITED-FR-ZYDUS-029954

PATIENT

DRUGS (6)
  1. HEMIGOXINE NATIVELLE [Suspect]
     Active Substance: DIGOXIN
     Indication: POISONING DELIBERATE
     Dosage: 7 DOSAGE FORM,IN TOTAL,(INTERVAL :1 TOTAL)
     Route: 048
     Dates: start: 20180814, end: 20180814
  2. LASILIX [Suspect]
     Active Substance: FUROSEMIDE
     Indication: POISONING DELIBERATE
     Dosage: 7 DOSAGE FORM,IN TOTAL,(INTERVAL :1 TOTAL)
     Route: 048
     Dates: start: 20180814, end: 20180814
  3. RISPERIDONE. [Suspect]
     Active Substance: RISPERIDONE
     Indication: POISONING DELIBERATE
     Dosage: 21 MILLIGRAM,(INTERVAL :1 TOTAL)
     Route: 048
     Dates: start: 20180814, end: 20180814
  4. DEPAKOTE [Suspect]
     Active Substance: DIVALPROEX SODIUM
     Indication: POISONING DELIBERATE
     Dosage: 14 DOSAGE FORM,IN TOTAL,(INTERVAL :1 TOTAL)
     Route: 048
     Dates: start: 20180814, end: 20180814
  5. DONORMYL [DOXYLAMINE SUCCINATE] [Suspect]
     Active Substance: DOXYLAMINE SUCCINATE
     Indication: POISONING DELIBERATE
     Dosage: 7 DOSAGE FORM,IN TOTAL,(INTERVAL :1 TOTAL)
     Route: 048
     Dates: start: 20180814, end: 20180814
  6. XARELTO [Suspect]
     Active Substance: RIVAROXABAN
     Indication: POISONING DELIBERATE
     Dosage: 7 DOSAGE FORM,IN TOTAL,(INTERVAL :1 TOTAL)
     Route: 048
     Dates: start: 20180814, end: 20180814

REACTIONS (4)
  - Somnolence [Recovered/Resolved]
  - Prothrombin time shortened [Recovered/Resolved]
  - Acute kidney injury [Recovered/Resolved]
  - Hypotension [Recovered/Resolved]

NARRATIVE: CASE EVENT DATE: 20180814
